FAERS Safety Report 18495273 (Version 1)
Quarter: 2020Q4

REPORT INFORMATION
  Report Type: Spontaneous
  Country: US (occurrence: US)
  Receive Date: 20201112
  Receipt Date: 20201112
  Transmission Date: 20210114
  Serious: Yes (Other)
  Sender: FDA-Public Use
  Company Number: US-CIPLA LTD.-2020US07772

PATIENT

DRUGS (33)
  1. WARFARIN [Interacting]
     Active Substance: WARFARIN
     Dosage: UNK, RECEIVED EXTRA ONE-TIME 5-MG DOSE
     Route: 065
     Dates: start: 20200502
  2. LEVETIRACETAM. [Suspect]
     Active Substance: LEVETIRACETAM
     Indication: EPILEPSY
     Dosage: 1500 MILLIGRAM, BID
     Route: 048
     Dates: end: 2018
  3. EPIDIOLEX [Interacting]
     Active Substance: CANNABIDIOL
     Dosage: 10 MG/KG (IN DIVIDED DOSES), BID (TWICE DAILY)
     Route: 048
     Dates: start: 20190702, end: 20190709
  4. EPIDIOLEX [Interacting]
     Active Substance: CANNABIDIOL
     Dosage: 20 MG/KG (IN DIVIDED DOSES), BID (TWICE DAILY)
     Route: 048
     Dates: start: 20190716, end: 20191212
  5. EPIDIOLEX [Interacting]
     Active Substance: CANNABIDIOL
     Indication: EPILEPSY
     Dosage: 5 MG/KG (IN DIVIDED DOSES), BID (TWICE DAILY)
     Route: 048
     Dates: start: 20190625, end: 20190702
  6. LACOSAMIDE. [Suspect]
     Active Substance: LACOSAMIDE
     Indication: EPILEPSY
     Dosage: 150 MILLIGRAM, UNK
     Route: 048
     Dates: end: 2018
  7. OMEPRAZOLE. [Interacting]
     Active Substance: OMEPRAZOLE
     Indication: PRODUCT USED FOR UNKNOWN INDICATION
     Dosage: 40 MG, DAILY
     Route: 065
     Dates: start: 2019
  8. AZELASTINE. [Concomitant]
     Active Substance: AZELASTINE HYDROCHLORIDE
     Indication: PRODUCT USED FOR UNKNOWN INDICATION
     Dosage: 2 SPRAYS IN BOTH NARES, PRN (AS NEEDED)
     Route: 045
  9. MONTELUKAST [Concomitant]
     Active Substance: MONTELUKAST SODIUM
     Indication: PRODUCT USED FOR UNKNOWN INDICATION
     Dosage: 10 MILLIGRAM, QD (NIGHTLY)
     Route: 065
  10. MYCOPHENOLIC ACID. [Concomitant]
     Active Substance: MYCOPHENOLIC ACID
     Indication: PRODUCT USED FOR UNKNOWN INDICATION
     Dosage: 1080 MILLIGRAM, BID (TWICE DAILY)
     Route: 065
  11. WARFARIN [Interacting]
     Active Substance: WARFARIN
     Dosage: 90 MG, WEEKLY
     Route: 065
     Dates: start: 2018, end: 20181204
  12. WARFARIN [Interacting]
     Active Substance: WARFARIN
     Dosage: 65 MG, WEEKLY
     Route: 065
     Dates: start: 20190716, end: 201912
  13. CARBAMAZEPINE. [Interacting]
     Active Substance: CARBAMAZEPINE
     Indication: EPILEPSY
     Dosage: 600 MG DAILY AND 900 MG NIGHTLY, BID
     Route: 048
     Dates: start: 201201
  14. LACOSAMIDE. [Suspect]
     Active Substance: LACOSAMIDE
     Dosage: 50 MILLIGRAM, BID
     Route: 048
     Dates: start: 2018
  15. CETIRIZINE [Concomitant]
     Active Substance: CETIRIZINE HYDROCHLORIDE
     Indication: PRODUCT USED FOR UNKNOWN INDICATION
     Dosage: 10 MG, DAILY
     Route: 065
  16. MUPIROCIN. [Concomitant]
     Active Substance: MUPIROCIN
     Indication: PRODUCT USED FOR UNKNOWN INDICATION
     Dosage: UNK, TID
     Route: 061
  17. PREDNISONE. [Concomitant]
     Active Substance: PREDNISONE
     Indication: PRODUCT USED FOR UNKNOWN INDICATION
     Dosage: 20 MG, DAILY
     Route: 065
  18. KETOCONAZOLE. [Concomitant]
     Active Substance: KETOCONAZOLE
     Indication: PRODUCT USED FOR UNKNOWN INDICATION
     Dosage: APPLIED TO FEET, BID
     Route: 061
     Dates: start: 20190510
  19. METHOTREXATE. [Concomitant]
     Active Substance: METHOTREXATE
     Indication: PRODUCT USED FOR UNKNOWN INDICATION
     Dosage: 20 MG, WEEKLY
     Route: 065
  20. TRAMADOL. [Concomitant]
     Active Substance: TRAMADOL
     Indication: PRODUCT USED FOR UNKNOWN INDICATION
     Dosage: 50 MG EVERY 6 HOURS, PRN (AS NEEDED)
     Route: 065
  21. EPIDIOLEX [Interacting]
     Active Substance: CANNABIDIOL
     Dosage: 15 MG/KG (IN DIVIDED DOSES), BID (TWICE DAILY)
     Route: 048
     Dates: start: 20190709, end: 20190716
  22. CARVEDILOL. [Concomitant]
     Active Substance: CARVEDILOL
     Indication: PRODUCT USED FOR UNKNOWN INDICATION
     Dosage: 6.25 MILLIGRAM, BID
     Route: 065
  23. WARFARIN [Interacting]
     Active Substance: WARFARIN
     Indication: DEEP VEIN THROMBOSIS
     Dosage: UNK
     Route: 065
     Dates: start: 201604
  24. WARFARIN [Interacting]
     Active Substance: WARFARIN
     Dosage: 85 MG, WEEKLY
     Route: 065
     Dates: start: 20190115, end: 2019
  25. WARFARIN [Interacting]
     Active Substance: WARFARIN
     Dosage: 75 MG, WEEKLY
     Route: 065
     Dates: start: 20190709, end: 201907
  26. ACETAMINOPHEN. [Concomitant]
     Active Substance: ACETAMINOPHEN
     Indication: PRODUCT USED FOR UNKNOWN INDICATION
     Dosage: 1000 MILLIGRAM, PRN ( TWICE DAILY AS NEEDED)
     Route: 065
  27. FOLIC ACID. [Concomitant]
     Active Substance: FOLIC ACID
     Indication: PRODUCT USED FOR UNKNOWN INDICATION
     Dosage: 1 MG, DAILY
     Route: 065
  28. WARFARIN [Interacting]
     Active Substance: WARFARIN
     Dosage: 80 MG, WEEKLY
     Route: 065
     Dates: start: 20190205, end: 20190702
  29. LEVETIRACETAM. [Suspect]
     Active Substance: LEVETIRACETAM
     Dosage: 2000 MILLIGRAM, BID
     Route: 048
     Dates: start: 2018
  30. FLUTICASONE. [Concomitant]
     Active Substance: FLUTICASONE
     Indication: PRODUCT USED FOR UNKNOWN INDICATION
     Dosage: 1 SPRAY IN EACH NARES, DAILY
     Route: 045
  31. RANITIDINE. [Concomitant]
     Active Substance: RANITIDINE
     Indication: PRODUCT USED FOR UNKNOWN INDICATION
     Dosage: 300 MG, DAILY
     Route: 065
  32. WARFARIN [Interacting]
     Active Substance: WARFARIN
     Dosage: UNK, RECEIVED EXTRA ONE-TIME 2.5 MG DOSE
     Route: 065
     Dates: start: 20190411
  33. ATORVASTATIN [Concomitant]
     Active Substance: ATORVASTATIN
     Indication: PRODUCT USED FOR UNKNOWN INDICATION
     Dosage: 40 MILLIGRAM, QD (NIGHTLY)
     Route: 065

REACTIONS (3)
  - Anticoagulation drug level above therapeutic [Recovered/Resolved]
  - Therapy non-responder [Unknown]
  - Drug interaction [Unknown]

NARRATIVE: CASE EVENT DATE: 20181204
